FAERS Safety Report 6220232-X (Version None)
Quarter: 2009Q2

REPORT INFORMATION
  Report Type: 
  Country: None (occurrence: None)
  Receive Date: 20090609
  Receipt Date: 20090526
  Transmission Date: 20091009
  Serious: No
  Sender: FDA-Public Use
  Company Number: US-ELI_LILLY_AND_COMPANY-US200905005303

PATIENT
  Age: 56 Year
  Sex: Female
  Weight: 136.5 kg

DRUGS (9)
  1. CYMBALTA [Suspect]
     Indication: ANXIETY
     Dosage: 30 MG, UNK
     Dates: start: 20090301
  2. CYMBALTA [Interacting]
     Dosage: 30 MG, UNK
  3. LEVOTHYROXINE SODIUM [Concomitant]
     Indication: BLOOD CHOLESTEROL INCREASED
  4. METOPROLOL SUCCINATE [Concomitant]
     Dosage: 50 MG, UNK
  5. METOPROLOL SUCCINATE [Concomitant]
     Dosage: 75 MG, DAILY (1/D)
  6. GEMFIBROZIL [Concomitant]
     Indication: BLOOD CHOLESTEROL
     Dosage: 600 MG, UNK
  7. LOVASTATIN [Concomitant]
     Indication: BLOOD CHOLESTEROL
     Dosage: 40 MG, UNK
  8. LYRICA [Concomitant]
     Dosage: 75 MG, UNK
  9. PHENDIMETRAZINE [Concomitant]
     Indication: APPETITE DISORDER
     Dosage: 35 MG, 3/D

REACTIONS (11)
  - ANXIETY [None]
  - BURNING SENSATION [None]
  - DRUG INTERACTION [None]
  - ERYTHEMA [None]
  - FLUSHING [None]
  - HOT FLUSH [None]
  - HYPERHIDROSIS [None]
  - INSOMNIA [None]
  - INTERNATIONAL NORMALISED RATIO INCREASED [None]
  - PALPITATIONS [None]
  - VENTRICULAR EXTRASYSTOLES [None]
